FAERS Safety Report 9300850 (Version 1)
Quarter: 2013Q2

REPORT INFORMATION
  Report Type: Spontaneous
  Country: ES (occurrence: ES)
  Receive Date: 20130521
  Receipt Date: 20130521
  Transmission Date: 20140414
  Serious: Yes (Other)
  Sender: FDA-Public Use
  Company Number: ES-GILEAD-2013-0075211

PATIENT
  Age: 50 Year
  Sex: Male

DRUGS (1)
  1. TRUVADA [Suspect]
     Indication: HIV INFECTION
     Dosage: UNK
     Dates: start: 2008

REACTIONS (1)
  - Senile ankylosing vertebral hyperostosis [Not Recovered/Not Resolved]
